FAERS Safety Report 5151450-X (Version None)
Quarter: 2006Q4

REPORT INFORMATION
  Report Type: 
  Country: None (occurrence: None)
  Receive Date: 20061114
  Receipt Date: 20061114
  Transmission Date: 20070319
  Serious: Yes (Hospitalization)
  Sender: FDA-Public Use
  Company Number: None

PATIENT
  Sex: Male
  Weight: 102.0593 kg

DRUGS (2)
  1. EQUATE PAIN RELIEVER 500MG EQUATE [Suspect]
     Indication: HEADACHE
     Dosage: 2 CAPLETS  WHEN NEEDED  (DURATION: SEVERAL MONTHS)
  2. EQUATE PAIN RELIEVER 500MG EQUATE [Suspect]
     Indication: TOOTHACHE
     Dosage: 2 CAPLETS  WHEN NEEDED  (DURATION: SEVERAL MONTHS)

REACTIONS (6)
  - ASTHENIA [None]
  - CONFUSIONAL STATE [None]
  - DIARRHOEA [None]
  - FOOD POISONING [None]
  - HAEMATEMESIS [None]
  - HAEMATOCHEZIA [None]
